FAERS Safety Report 13413641 (Version 1)
Quarter: 2017Q2

REPORT INFORMATION
  Report Type: Spontaneous
  Country: US (occurrence: US)
  Receive Date: 20170407
  Receipt Date: 20170407
  Transmission Date: 20170830
  Serious: Yes (Hospitalization, Other)
  Sender: FDA-Public Use
  Company Number: US-ASTELLAS-2017US013253

PATIENT
  Age: 10 Year
  Sex: Female

DRUGS (2)
  1. SIROLIMUS. [Suspect]
     Active Substance: SIROLIMUS
     Indication: LIVER TRANSPLANT
     Dosage: UNK UNK, UNKNOWN FREQ.
     Route: 065
  2. TACROLIMUS. [Suspect]
     Active Substance: TACROLIMUS
     Indication: LIVER TRANSPLANT
     Dosage: UNK UNK, UNKNOWN FREQ.
     Route: 065

REACTIONS (8)
  - Immunosuppressant drug level increased [Unknown]
  - Alanine aminotransferase increased [Recovering/Resolving]
  - Liver abscess [Recovering/Resolving]
  - Gamma-glutamyltransferase increased [Unknown]
  - Hepatic artery stenosis [Unknown]
  - Adenovirus infection [Recovering/Resolving]
  - Liver transplant rejection [Unknown]
  - Hepatic necrosis [Unknown]
